FAERS Safety Report 8603792-0 (Version None)
Quarter: 2012Q3

REPORT INFORMATION
  Report Type: 
  Country: None (occurrence: None)
  Receive Date: 20120817
  Receipt Date: 20120810
  Transmission Date: 20120928
  Serious: Yes (Other)
  Sender: FDA-Public Use
  Company Number: CHPA2012US018016

PATIENT
  Age: 83 Year
  Sex: Male

DRUGS (1)
  1. EXCEDRIN EXTRA STRENGTH CAPLETS [Suspect]
     Indication: PAIN
     Dosage: UP TO 24 TABLETS IN A DAY
     Route: 048
     Dates: end: 20120101

REACTIONS (2)
  - OVERDOSE [None]
  - CARDIAC FAILURE CONGESTIVE [None]
